FAERS Safety Report 12410804 (Version 1)
Quarter: 2016Q2

REPORT INFORMATION
  Report Type: Spontaneous
  Country: US (occurrence: US)
  Receive Date: 20160527
  Receipt Date: 20160527
  Transmission Date: 20160815
  Serious: No
  Sender: FDA-Public Use
  Company Number: US-BAYER-2016-098309

PATIENT
  Age: 76 Year
  Sex: Male
  Weight: 88.44 kg

DRUGS (6)
  1. MULTIVITAMIN [Concomitant]
     Active Substance: VITAMINS
     Dosage: UNK
  2. HYDROCHLOROTHIAZIDE. [Concomitant]
     Active Substance: HYDROCHLOROTHIAZIDE
     Dosage: UNK
  3. ALEVE [Suspect]
     Active Substance: NAPROXEN SODIUM
     Indication: ARTHRITIS
     Dosage: 1 DF, QD
     Route: 048
  4. DR. SCHOLLS CLEAR AWAY WART REMOVER [Suspect]
     Active Substance: SALICYLIC ACID
     Indication: SKIN PAPILLOMA
     Dosage: 1 DF, EVERY TWO DAYS, HOWEVER, IF WATER GETS ON IT, REAPPLY DUE TO ADHESIVE DISSOLVING WHEN WET
     Route: 061
     Dates: start: 201605
  5. ASPIRIN. [Concomitant]
     Active Substance: ASPIRIN
     Dosage: 1 DF, QD
  6. ALEVE [Suspect]
     Active Substance: NAPROXEN SODIUM
     Indication: ARTHRITIS
     Dosage: 2 DF, QD
     Route: 048
     Dates: start: 2015

REACTIONS (8)
  - Product difficult to remove [None]
  - Product use issue [None]
  - Product quality issue [None]
  - Product adhesion issue [None]
  - Drug effect incomplete [None]
  - Product quality issue [None]
  - Product use issue [None]
  - Hypoaesthesia [None]

NARRATIVE: CASE EVENT DATE: 201605
